FAERS Safety Report 5143451-2 (Version None)
Quarter: 2006Q4

REPORT INFORMATION
  Report Type: 
  Country: None (occurrence: None)
  Receive Date: 20061101
  Receipt Date: 20061101
  Transmission Date: 20070319
  Serious: Yes (Hospitalization)
  Sender: FDA-Public Use
  Company Number: None

PATIENT
  Age: 64 Year
  Sex: Male
  Weight: 98.4306 kg

DRUGS (5)
  1. VANCOMYCIN [Suspect]
     Indication: GROIN ABSCESS
     Dosage: 1750 MG IV Q12H
     Route: 042
     Dates: start: 20060826, end: 20060830
  2. PANTOPRAZOLE SODIUM [Concomitant]
  3. SERTRALINE [Concomitant]
  4. METRONIDAZOLE [Concomitant]
  5. ALPRAZOLAM [Concomitant]

REACTIONS (2)
  - POSTOPERATIVE RENAL FAILURE [None]
  - RENAL TUBULAR NECROSIS [None]
